FAERS Safety Report 21364174 (Version 1)
Quarter: 2022Q3

REPORT INFORMATION
  Report Type: Spontaneous
  Country: FR (occurrence: FR)
  Receive Date: 20220922
  Receipt Date: 20220922
  Transmission Date: 20221026
  Serious: Yes (Life-Threatening)
  Sender: FDA-Public Use
  Company Number: None

PATIENT
  Age: 59 Year
  Sex: Male
  Weight: 83 kg

DRUGS (4)
  1. ETOPOSIDE [Suspect]
     Active Substance: ETOPOSIDE
     Indication: T-cell lymphoma
     Dosage: 14-DAYS TREATMENT ON 04/05, 20/05, 03/06 AND 17/06
     Dates: start: 20220504, end: 20220617
  2. CYCLOPHOSPHAMIDE [Suspect]
     Active Substance: CYCLOPHOSPHAMIDE
     Indication: T-cell lymphoma
     Dosage: 14-DAYS TREATMENT ON 04/05, 20/05, 03/06 AND 17/06
     Dates: start: 20220504, end: 20220617
  3. DOXORUBICIN HYDROCHLORIDE [Suspect]
     Active Substance: DOXORUBICIN HYDROCHLORIDE
     Indication: T-cell lymphoma
     Dosage: 14-DAYS TREATMENT ON 04/05, 20/05, 03/06 AND 17/06
     Dates: start: 20220504, end: 20220617
  4. VINCRISTINE SULFATE [Suspect]
     Active Substance: VINCRISTINE SULFATE
     Indication: T-cell lymphoma
     Dosage: 14-DAYS TREATMENT ON 04/05, 20/05, 03/06 AND 17/06
     Dates: start: 20220504, end: 20220617

REACTIONS (1)
  - Haemophagocytic lymphohistiocytosis [Unknown]

NARRATIVE: CASE EVENT DATE: 20220101
